FAERS Safety Report 9785498 (Version 1)
Quarter: 2013Q4

REPORT INFORMATION
  Report Type: Spontaneous
  Country: US (occurrence: None)
  Receive Date: 20131226
  Receipt Date: 20131226
  Transmission Date: 20140711
  Serious: Yes (Other)
  Sender: FDA-Public Use
  Company Number: None

PATIENT
  Age: 53 Year
  Sex: Male
  Weight: 90.72 kg

DRUGS (4)
  1. AMBIEN [Suspect]
     Indication: SLEEP DISORDER
     Dosage: 1 PILL
     Route: 048
  2. CREATOR [Concomitant]
  3. EDARBU [Concomitant]
  4. ASPIRIN [Concomitant]

REACTIONS (4)
  - Confusional state [None]
  - Somnambulism [None]
  - Memory impairment [None]
  - Somnambulism [None]
